FAERS Safety Report 19655278 (Version 1)
Quarter: 2021Q3

REPORT INFORMATION
  Report Type: Report from Study
  Country: US (occurrence: US)
  Receive Date: 20210804
  Receipt Date: 20210804
  Transmission Date: 20211014
  Serious: Yes (Hospitalization, Other)
  Sender: FDA-Public Use
  Company Number: US-BIOVITRUM-2021US6978

PATIENT
  Sex: Female

DRUGS (1)
  1. KINERET [Suspect]
     Active Substance: ANAKINRA
     Indication: RHEUMATOID ARTHRITIS
     Route: 058
     Dates: start: 20210505

REACTIONS (13)
  - Carditis [Unknown]
  - Peripheral swelling [Unknown]
  - Ligament sprain [Unknown]
  - Drug hypersensitivity [Unknown]
  - Dyspnoea [Unknown]
  - Intentional dose omission [Unknown]
  - Drug ineffective [Unknown]
  - Electrocardiogram abnormal [Unknown]
  - Chest pain [Unknown]
  - Cardiomegaly [Unknown]
  - Inflammation [Unknown]
  - Arthralgia [Unknown]
  - Heart rate increased [Unknown]
